FAERS Safety Report 8049984-3 (Version None)
Quarter: 2012Q1

REPORT INFORMATION
  Report Type: 
  Country: None (occurrence: None)
  Receive Date: 20120117
  Receipt Date: 20120111
  Transmission Date: 20120608
  Serious: Yes (Death, Other)
  Sender: FDA-Public Use
  Company Number: US-PFIZER INC-2011153082

PATIENT
  Sex: Female

DRUGS (1)
  1. CHANTIX [Suspect]
     Indication: SMOKING CESSATION THERAPY
     Dosage: UNK
     Route: 048
     Dates: start: 20090101, end: 20100924

REACTIONS (5)
  - COMPLETED SUICIDE [None]
  - INTENTIONAL OVERDOSE [None]
  - MOOD SWINGS [None]
  - DEPRESSION [None]
  - INTENTIONAL SELF-INJURY [None]
